FAERS Safety Report 5253822-1 (Version None)
Quarter: 2007Q1

REPORT INFORMATION
  Report Type: 
  Country: None (occurrence: None)
  Receive Date: 20070227
  Receipt Date: 20070213
  Transmission Date: 20070707
  Serious: Yes (Other)
  Sender: FDA-Public Use
  Company Number: TPG2007A00150

PATIENT
  Sex: Male

DRUGS (6)
  1. ACTOS [Suspect]
     Indication: DIABETES MELLITUS
     Dosage: 45 MG, PER ORAL
     Route: 048
     Dates: start: 20061120
  2. METFORMIN HCL [Concomitant]
  3. DIURETICS (DIURETICS) [Concomitant]
  4. BETA BLOCKING AGENTS (BETA BLOCKING AGENTS) [Concomitant]
  5. RENIN-ANGIOTENSIN SYSTEM, AGENTS ACTIN ON (RENIN-ANGIOTENSIN SYSTEM, A [Concomitant]
  6. ANTITHROMBOTIC AGENTS (ANTITHROMBOTIC AGENTS) [Concomitant]

REACTIONS (2)
  - CARDIAC FAILURE [None]
  - RENAL IMPAIRMENT [None]
